FAERS Safety Report 22149881 (Version 1)
Quarter: 2023Q1

REPORT INFORMATION
  Report Type: Spontaneous
  Country: US (occurrence: US)
  Receive Date: 20230329
  Receipt Date: 20230329
  Transmission Date: 20230417
  Serious: No
  Sender: FDA-Public Use
  Company Number: US-GLAXOSMITHKLINE-USCH2023013235

PATIENT

DRUGS (2)
  1. FLUTICASONE [Suspect]
     Active Substance: FLUTICASONE
     Indication: Eczema
     Dosage: UNK
     Dates: start: 202303
  2. FLUTICASONE [Suspect]
     Active Substance: FLUTICASONE
     Indication: Rhinorrhoea

REACTIONS (2)
  - Product use in unapproved indication [Recovering/Resolving]
  - Drug effective for unapproved indication [Unknown]

NARRATIVE: CASE EVENT DATE: 20230301
